FAERS Safety Report 8447991-X (Version None)
Quarter: 2012Q2

REPORT INFORMATION
  Report Type: 
  Country: None (occurrence: None)
  Receive Date: 20120619
  Receipt Date: 20120611
  Transmission Date: 20120825
  Serious: Yes (Hospitalization)
  Sender: FDA-Public Use
  Company Number: US-BAYER-2012-018388

PATIENT
  Age: 35 Year
  Sex: Female
  Weight: 90.703 kg

DRUGS (4)
  1. LEXAPRO [Concomitant]
  2. YAZ [Suspect]
     Indication: CONTRACEPTION
     Route: 048
  3. RELPAX [Concomitant]
  4. THYROID TAB [Concomitant]

REACTIONS (1)
  - PULMONARY EMBOLISM [None]
